FAERS Safety Report 8161004-9 (Version None)
Quarter: 2012Q1

REPORT INFORMATION
  Report Type: 
  Country: None (occurrence: None)
  Receive Date: 20120224
  Receipt Date: 20120213
  Transmission Date: 20120608
  Serious: Yes (Other)
  Sender: FDA-Public Use
  Company Number: UY-BRISTOL-MYERS SQUIBB COMPANY-16413650

PATIENT
  Age: 26 Year
  Sex: Female

DRUGS (4)
  1. ALLOPURINOL [Suspect]
  2. CYCLOPHOSPHAMIDE [Suspect]
  3. CARBOPLATIN [Suspect]
  4. ETOPOSIDE [Suspect]

REACTIONS (1)
  - RASH MORBILLIFORM [None]
